FAERS Safety Report 9153452 (Version 1)
Quarter: 2013Q1

REPORT INFORMATION
  Report Type: Spontaneous
  Country: US (occurrence: None)
  Receive Date: 20130306
  Receipt Date: 20130306
  Transmission Date: 20140127
  Serious: Yes (Hospitalization)
  Sender: FDA-Public Use
  Company Number: None

PATIENT
  Age: 81 Year
  Sex: Male
  Weight: 89 kg

DRUGS (2)
  1. COUMADIN [Suspect]
     Dosage: 5 MG OR 7.5 MG DAILY PO
     Dates: start: 20130222, end: 20130225
  2. XARELTO [Suspect]
     Route: 048
     Dates: start: 20130223, end: 20130225

REACTIONS (2)
  - Faeces discoloured [None]
  - Fibrin D dimer increased [None]
